FAERS Safety Report 6825935-1 (Version None)
Quarter: 2010Q3

REPORT INFORMATION
  Report Type: 
  Country: None (occurrence: None)
  Receive Date: 20100709
  Receipt Date: 20100701
  Transmission Date: 20110219
  Serious: Yes (Other)
  Sender: FDA-Public Use
  Company Number: US-ASTRAZENECA-2007UW22689

PATIENT
  Age: 32 Year
  Sex: Male
  Weight: 108.9 kg

DRUGS (3)
  1. SEROQUEL [Suspect]
     Indication: SLEEP DISORDER
     Dosage: 25-75 MG
     Route: 048
     Dates: start: 20021201, end: 20040101
  2. SEROQUEL [Suspect]
     Indication: ANXIETY
     Dosage: 25-75 MG
     Route: 048
     Dates: start: 20021201, end: 20040101
  3. XANAX [Concomitant]

REACTIONS (4)
  - DIABETIC NEUROPATHY [None]
  - HERNIA [None]
  - HYPERGLYCAEMIA [None]
  - TYPE 2 DIABETES MELLITUS [None]
